FAERS Safety Report 10173177 (Version 1)
Quarter: 2014Q2

REPORT INFORMATION
  Report Type: Spontaneous
  Country: CA (occurrence: CA)
  Receive Date: 20140515
  Receipt Date: 20140515
  Transmission Date: 20141212
  Serious: Yes (Hospitalization)
  Sender: FDA-Public Use
  Company Number: CA-ROCHE-1401466

PATIENT
  Age: 75 Year
  Sex: Male

DRUGS (4)
  1. RITUXAN [Suspect]
     Indication: PRODUCT USED FOR UNKNOWN INDICATION
     Route: 042
  2. FUROSEMIDE [Suspect]
     Indication: PRODUCT USED FOR UNKNOWN INDICATION
     Route: 065
  3. ACETAMINOPHEN [Concomitant]
     Route: 065
  4. METHYLPREDNISOLONE [Concomitant]
     Route: 065

REACTIONS (3)
  - Limb injury [Recovered/Resolved]
  - Local swelling [Not Recovered/Not Resolved]
  - Lower respiratory tract infection [Recovered/Resolved]
